FAERS Safety Report 6375534-3 (Version None)
Quarter: 2009Q3

REPORT INFORMATION
  Report Type: 
  Country: None (occurrence: None)
  Receive Date: 20090917
  Receipt Date: 20090917
  Transmission Date: 20100115
  Serious: No
  Sender: FDA-Public Use
  Company Number: None

PATIENT
  Age: 60 Year
  Sex: Female

DRUGS (2)
  1. LANTUS [Suspect]
     Dosage: 30 UNITS QHS SQ
     Route: 058
  2. LANTUS [Suspect]
     Dosage: 20 UNITS QHS SQ
     Route: 058

REACTIONS (3)
  - BLOOD GLUCOSE INCREASED [None]
  - DRUG ADMINISTRATION ERROR [None]
  - MEDICATION ERROR [None]
